FAERS Safety Report 11113486 (Version 1)
Quarter: 2015Q2

REPORT INFORMATION
  Report Type: Spontaneous
  Country: CZ (occurrence: None)
  Receive Date: 20150512
  Receipt Date: 20150512
  Transmission Date: 20150821
  Serious: Yes (Hospitalization)
  Sender: FDA-Public Use
  Company Number: IPC201504-000277

PATIENT
  Age: 52 Year
  Sex: Female

DRUGS (1)
  1. ALLOPURINOL (ALLOPURINOL) [Suspect]
     Active Substance: ALLOPURINOL
     Indication: HYPERURICAEMIA

REACTIONS (2)
  - Off label use [None]
  - Drug reaction with eosinophilia and systemic symptoms [None]
